FAERS Safety Report 5149812-X (Version None)
Quarter: 2006Q4

REPORT INFORMATION
  Report Type: 
  Country: None (occurrence: None)
  Receive Date: 20061113
  Receipt Date: 20061031
  Transmission Date: 20070319
  Serious: Yes (Other)
  Sender: FDA-Public Use
  Company Number: US-ELI_LILLY_AND_COMPANY-US200611000071

PATIENT
  Sex: Female

DRUGS (7)
  1. HUMALOG [Suspect]
     Indication: DIABETES MELLITUS
     Dosage: 9 U, EACH MORNING
     Dates: start: 20000101
  2. HUMALOG [Suspect]
     Dosage: 10 U, DAILY (1/D)
     Dates: start: 20000101
  3. HUMALOG [Suspect]
     Dosage: 12 U, EACH EVENING
     Dates: start: 20000101
  4. LISINOPRIL [Concomitant]
  5. AVAPRO [Concomitant]
  6. SINGULAIR [Concomitant]
  7. ADVAIR DISKUS 100/50 [Concomitant]

REACTIONS (2)
  - DIABETIC COMA [None]
  - GLYCOSYLATED HAEMOGLOBIN INCREASED [None]
